FAERS Safety Report 23849360 (Version 1)
Quarter: 2024Q2

REPORT INFORMATION
  Report Type: Spontaneous
  Country: FR (occurrence: FR)
  Receive Date: 20240513
  Receipt Date: 20240513
  Transmission Date: 20240716
  Serious: Yes (Other)
  Sender: FDA-Public Use
  Company Number: None

PATIENT
  Age: 94 Year
  Sex: Female
  Weight: 85 kg

DRUGS (12)
  1. FUROSEMIDE [Suspect]
     Active Substance: FUROSEMIDE
     Indication: Cardiac failure
     Dates: start: 20240226
  2. OFLOXACIN [Suspect]
     Active Substance: OFLOXACIN
     Indication: Bacterial translocation
     Dates: start: 20240223, end: 20240229
  3. METRONIDAZOLE [Suspect]
     Active Substance: METRONIDAZOLE
     Indication: Bacterial translocation
     Dates: start: 20240222, end: 20240229
  4. PHLOROGLUCINOL [Concomitant]
     Active Substance: PHLOROGLUCINOL
  5. INSULIN NOS [Concomitant]
     Active Substance: INSULIN NOS
  6. ACETAMINOPHEN [Concomitant]
     Active Substance: ACETAMINOPHEN
  7. CLOPIDOGREL [Concomitant]
     Active Substance: CLOPIDOGREL BISULFATE
  8. NITROGLYCERIN [Concomitant]
     Active Substance: NITROGLYCERIN
  9. CARBIMAZOLE [Concomitant]
     Active Substance: CARBIMAZOLE
  10. BISOPROLOL FUMARATE [Concomitant]
     Active Substance: BISOPROLOL FUMARATE
  11. PREGABALIN [Concomitant]
     Active Substance: PREGABALIN
  12. TRAMADOL HYDROCHLORIDE [Concomitant]
     Active Substance: TRAMADOL HYDROCHLORIDE

REACTIONS (1)
  - Administration site inflammation [Recovered/Resolved]

NARRATIVE: CASE EVENT DATE: 20240229
